FAERS Safety Report 5529514-8 (Version None)
Quarter: 2007Q4

REPORT INFORMATION
  Report Type: 
  Country: None (occurrence: None)
  Receive Date: 20071129
  Receipt Date: 20071127
  Transmission Date: 20080405
  Serious: Yes (Hospitalization)
  Sender: FDA-Public Use
  Company Number: US-SANOFI-SYNTHELABO-A03200702272

PATIENT
  Sex: Female
  Weight: 68 kg

DRUGS (14)
  1. AMBIEN [Suspect]
     Indication: INSOMNIA
     Route: 048
     Dates: start: 20000101, end: 20030301
  2. AMBIEN [Suspect]
     Route: 048
     Dates: start: 20041101
  3. HYDROXYZINE [Concomitant]
     Route: 048
  4. CHLORHEXIDINE GLUCONATE [Concomitant]
     Dosage: 0.12 %
     Route: 048
  5. IBUPROFEN [Concomitant]
     Route: 048
  6. TRIMETHOBENZAMIDE [Concomitant]
     Route: 048
  7. PAXIL CR [Concomitant]
     Route: 048
  8. VICODIN [Concomitant]
     Dosage: 5/500 MG - 8 TO 10 TABLETS DAILY
     Route: 065
  9. PHISOHEX [Concomitant]
     Dosage: 3 %
     Route: 061
  10. PREDNISONE TAB [Concomitant]
     Route: 048
  11. FUROSEMIDE [Concomitant]
     Route: 048
  12. CEPHALEXIN [Concomitant]
     Route: 048
  13. CLONAZEPAM [Concomitant]
     Route: 048
  14. SERZONE [Concomitant]
     Dosage: UNK
     Route: 048

REACTIONS (26)
  - ALCOHOL POISONING [None]
  - AMNESIA [None]
  - ANXIETY [None]
  - BALANCE DISORDER [None]
  - CHEST PAIN [None]
  - CONFUSIONAL STATE [None]
  - CONTUSION [None]
  - DEPRESSION [None]
  - DRUG ABUSE [None]
  - EATING DISORDER [None]
  - FALL [None]
  - FEELING DRUNK [None]
  - HAND FRACTURE [None]
  - IMPAIRED DRIVING ABILITY [None]
  - INTENTIONAL SELF-INJURY [None]
  - LEGAL PROBLEM [None]
  - LIMB INJURY [None]
  - LOSS OF CONSCIOUSNESS [None]
  - POST-TRAUMATIC STRESS DISORDER [None]
  - PSYCHIATRIC SYMPTOM [None]
  - ROAD TRAFFIC ACCIDENT [None]
  - SOMNAMBULISM [None]
  - STRESS [None]
  - SUICIDAL IDEATION [None]
  - SUICIDE ATTEMPT [None]
  - WEIGHT INCREASED [None]
